FAERS Safety Report 4971483-3 (Version None)
Quarter: 2006Q2

REPORT INFORMATION
  Report Type: 
  Country: None (occurrence: None)
  Receive Date: 20060406
  Receipt Date: 20060317
  Transmission Date: 20061013
  Serious: Yes (Other)
  Sender: FDA-Public Use
  Company Number: IN200603002541

PATIENT
  Age: 33 Year
  Sex: Female
  Weight: 40 kg

DRUGS (3)
  1. GEMCITABINE HYDROCHLORIDE (GEMCITABINE HYDROCHLORIDE) VIAL [Suspect]
     Indication: NON-SMALL CELL LUNG CANCER
     Dosage: 1250 MG/M2, DAYS 1+8 IN 21 DAY CYCLE, INTRAVENOUS
     Route: 042
     Dates: start: 20051014, end: 20060209
  2. CISPLATIN [Suspect]
     Indication: NON-SMALL CELL LUNG CANCER
     Dosage: 75 MG/M2, DAY 1, IN 21 DAY CYCLE, INTRAVENOUS
     Route: 042
     Dates: start: 20051014, end: 20060202
  3. FOLIC ACID [Concomitant]

REACTIONS (2)
  - METASTASES TO CENTRAL NERVOUS SYSTEM [None]
  - PAPILLOEDEMA [None]
